FAERS Safety Report 18491271 (Version 1)
Quarter: 2020Q4

REPORT INFORMATION
  Report Type: Report from Study
  Country: DE (occurrence: DE)
  Receive Date: 20201111
  Receipt Date: 20201111
  Transmission Date: 20210114
  Serious: Yes (Other)
  Sender: FDA-Public Use
  Company Number: DE-TEVA-2020-DE-1846693

PATIENT
  Age: 70 Year
  Sex: Male
  Weight: 90 kg

DRUGS (18)
  1. DIAZEPAM. [Suspect]
     Active Substance: DIAZEPAM
     Indication: SEIZURE
     Route: 042
     Dates: start: 19940923, end: 19940923
  2. EPANUTIN PARENTERAL [Suspect]
     Active Substance: PHENYTOIN SODIUM
     Indication: SEIZURE
     Route: 042
     Dates: start: 19940919, end: 19940921
  3. RIVOTRIL [Suspect]
     Active Substance: CLONAZEPAM
     Indication: SEIZURE
     Route: 065
     Dates: start: 19940922, end: 19940922
  4. COTRIM FORTE [Suspect]
     Active Substance: SULFAMETHOXAZOLE\TRIMETHOPRIM
     Route: 048
     Dates: start: 19940913, end: 19940918
  5. PERIAMIN X [Suspect]
     Active Substance: AMINO ACIDS\ELECTROLYTES NOS\XYLITOL
     Route: 042
     Dates: start: 19940922, end: 19940924
  6. ZENTROPIL [Suspect]
     Active Substance: PHENYTOIN
     Route: 048
  7. HEPARIN INJEKT 5.000 [Suspect]
     Active Substance: HEPARIN SODIUM
     Route: 058
     Dates: start: 19940922, end: 19940926
  8. NAC [ACETYLCYSTEINE] [Suspect]
     Active Substance: ACETYLCYSTEINE
     Route: 048
     Dates: start: 19940916, end: 19940926
  9. ELOBACT 250 FILMTABLETTEN [Suspect]
     Active Substance: CEFUROXIME AXETIL
     Dosage: 250,BID
     Route: 048
     Dates: start: 19940926, end: 19941006
  10. ERYFER [FERROUS SULFATE] [Suspect]
     Active Substance: FERROUS SULFATE
     Route: 048
     Dates: start: 19941005, end: 19941006
  11. FORTECORTIN [Suspect]
     Active Substance: DEXAMETHASONE
     Route: 042
     Dates: start: 19940919, end: 19940924
  12. SPIZEF (CEFOTIAM HYDROCHLORIDE) [Suspect]
     Active Substance: CEFOTIAM HYDROCHLORIDE
     Route: 042
  13. VALIUM [Suspect]
     Active Substance: DIAZEPAM
     Indication: SEIZURE
     Route: 042
     Dates: start: 19940922, end: 19940922
  14. TEGRETAL 200 [Suspect]
     Active Substance: CARBAMAZEPINE
     Indication: SEIZURE
     Dosage: 200,QID
     Route: 048
     Dates: start: 19940920
  15. ULCOGANT [Suspect]
     Active Substance: SUCRALFATE
     Route: 048
     Dates: start: 19940926, end: 19941004
  16. LASIX [Suspect]
     Active Substance: FUROSEMIDE
     Route: 042
     Dates: start: 19940919, end: 19940920
  17. TRANXILIUM [Suspect]
     Active Substance: CLORAZEPATE DIPOTASSIUM
     Route: 048
     Dates: start: 19940912, end: 19940912
  18. CONTRADOL [ASPIRIN\CAFFEINE\CARBROMAL\PHENACETIN] [Suspect]
     Active Substance: ASPIRIN\CAFFEINE\CARBROMAL\PHENACETIN
     Route: 065
     Dates: start: 19940917, end: 19940917

REACTIONS (15)
  - Pyrexia [Recovering/Resolving]
  - Mucosal erosion [Recovering/Resolving]
  - Lymphocytosis [Unknown]
  - Pneumonia [Unknown]
  - Toxic epidermal necrolysis [Unknown]
  - Aspartate aminotransferase increased [Unknown]
  - Blood lactate dehydrogenase increased [Unknown]
  - Blood urea increased [Unknown]
  - Conjunctivitis [Recovering/Resolving]
  - Rash [Recovering/Resolving]
  - Alanine aminotransferase increased [Unknown]
  - Gamma-glutamyltransferase increased [Unknown]
  - Leukocytosis [Unknown]
  - Stevens-Johnson syndrome [Unknown]
  - Blister [Recovering/Resolving]

NARRATIVE: CASE EVENT DATE: 19941006
